FAERS Safety Report 7374490-9 (Version None)
Quarter: 2011Q1

REPORT INFORMATION
  Report Type: 
  Country: None (occurrence: None)
  Receive Date: 20110325
  Receipt Date: 20110113
  Transmission Date: 20110831
  Serious: No
  Sender: FDA-Public Use
  Company Number: US-MYLANLABS-2011S1001154

PATIENT
  Sex: Male

DRUGS (8)
  1. TIZANIDINE [Concomitant]
  2. OXYCODONE [Concomitant]
  3. FENTANYL-100 [Suspect]
     Indication: PAIN
     Dosage: Q72H
     Route: 062
  4. LISINOPRIL AND HYDROCHLOROTHIAZIDE [Concomitant]
  5. IMITREX [Concomitant]
  6. VENTOLIN [Concomitant]
  7. PHENERGAN [Concomitant]
  8. ADVAIR DISKUS 100/50 [Concomitant]

REACTIONS (3)
  - PAIN [None]
  - DRUG EFFECT DECREASED [None]
  - DRUG WITHDRAWAL SYNDROME [None]
